FAERS Safety Report 4396289-8 (Version None)
Quarter: 2004Q3

REPORT INFORMATION
  Report Type: 
  Country: None (occurrence: None)
  Receive Date: 20040708
  Receipt Date: 20040624
  Transmission Date: 20050211
  Serious: Yes (Other)
  Sender: FDA-Public Use
  Company Number: 2004-UK-00612UK

PATIENT
  Age: 56 Year
  Sex: Female

DRUGS (1)
  1. MOBIC [Suspect]
     Indication: ARTHRALGIA
     Dosage: 15 MG, PO
     Route: 048
     Dates: start: 20040608, end: 20040609

REACTIONS (4)
  - DYSGEUSIA [None]
  - PRURITUS [None]
  - SWELLING FACE [None]
  - VISION BLURRED [None]
